FAERS Safety Report 24803059 (Version 3)
Quarter: 2025Q2

REPORT INFORMATION
  Report Type: Spontaneous
  Country: US (occurrence: US)
  Receive Date: 20250103
  Receipt Date: 20250623
  Transmission Date: 20250716
  Serious: Yes (Death, Hospitalization, Other)
  Sender: ADVANZ PHARMA
  Company Number: US-ADVANZ PHARMA-202412010881

PATIENT

DRUGS (1)
  1. ZONISAMIDE [Suspect]
     Active Substance: ZONISAMIDE
     Indication: Weight decreased
     Dates: start: 20230614, end: 20230705

REACTIONS (3)
  - Drug reaction with eosinophilia and systemic symptoms [Fatal]
  - Drug-induced liver injury [Fatal]
  - Off label use [Unknown]
